FAERS Safety Report 8857835 (Version 1)
Quarter: 2012Q4

REPORT INFORMATION
  Report Type: 
  Country: CA (occurrence: CA)
  Receive Date: 20121024
  Receipt Date: 20121024
  Transmission Date: 20130627
  Serious: Yes (Hospitalization, Other)
  Sender: FDA-Public Use
  Company Number: CA-B.I. PHARMACEUTICALS,INC./RIDGEFIELD-2012-CN-02139CN

PATIENT
  Age: 90 Year
  Sex: Female

DRUGS (3)
  1. PRADAX [Suspect]
     Indication: CEREBROVASCULAR ACCIDENT PROPHYLAXIS
     Dosage: 220 mg
     Dates: start: 201010, end: 201101
  2. PRADAX [Suspect]
     Indication: ATRIAL FIBRILLATION
  3. MEDICATION NOT FURTHER SPECIFIED [Concomitant]

REACTIONS (4)
  - Gastrointestinal haemorrhage [Recovered/Resolved]
  - Renal failure acute [Recovered/Resolved]
  - Cardiac failure congestive [Unknown]
  - Pneumonia [Unknown]
